FAERS Safety Report 16933060 (Version 1)
Quarter: 2019Q4

REPORT INFORMATION
  Report Type: Spontaneous
  Country: LT (occurrence: LT)
  Receive Date: 20191018
  Receipt Date: 20191018
  Transmission Date: 20200122
  Serious: Yes (Other)
  Sender: FDA-Public Use
  Company Number: LT-TEVA-2019-LT-1122672

PATIENT
  Sex: Female

DRUGS (1)
  1. DICLOFENAC RATIOPHARM [Suspect]
     Active Substance: DICLOFENAC
     Indication: ARTHRALGIA
     Dosage: IN THE EVENING
     Route: 065
     Dates: start: 20191010

REACTIONS (1)
  - Haematochezia [Unknown]
